FAERS Safety Report 6889548-8 (Version None)
Quarter: 2010Q3

REPORT INFORMATION
  Report Type: 
  Country: None (occurrence: None)
  Receive Date: 20100730
  Receipt Date: 20080304
  Transmission Date: 20110219
  Serious: No
  Sender: FDA-Public Use
  Company Number: US-PFIZER INC-2008006313

PATIENT
  Sex: Male
  Weight: 108.86 kg

DRUGS (1)
  1. LIPITOR [Suspect]
     Indication: BLOOD CHOLESTEROL INCREASED
     Route: 048
     Dates: start: 20080114

REACTIONS (2)
  - CHILLS [None]
  - MUSCLE CONTRACTIONS INVOLUNTARY [None]
